FAERS Safety Report 9853663 (Version 1)
Quarter: 2014Q1

REPORT INFORMATION
  Report Type: Spontaneous
  Country: US (occurrence: US)
  Receive Date: 20140129
  Receipt Date: 20140129
  Transmission Date: 20141002
  Serious: No
  Sender: FDA-Public Use
  Company Number: US-VIIV HEALTHCARE LIMITED-A1021669A

PATIENT
  Age: 61 Year
  Sex: Male

DRUGS (4)
  1. COMBIVIR [Suspect]
     Indication: HIV INFECTION
     Route: 048
     Dates: start: 20121108
  2. KALETRA [Concomitant]
  3. BACTRIM [Concomitant]
  4. XANAX [Concomitant]

REACTIONS (1)
  - Dental plaque [Unknown]
